FAERS Safety Report 9621460 (Version 2)
Quarter: 2013Q4

REPORT INFORMATION
  Report Type: Spontaneous
  Country: JP (occurrence: JP)
  Receive Date: 20131015
  Receipt Date: 20131015
  Transmission Date: 20140711
  Serious: Yes (Other)
  Sender: FDA-Public Use
  Company Number: JP-PFIZER INC-2013258887

PATIENT
  Age: 95 Year
  Sex: Female

DRUGS (8)
  1. SELARA [Suspect]
     Dosage: UNK
     Route: 048
  2. YOKUKAN-SAN [Concomitant]
     Dosage: UNK
  3. MAGMITT [Concomitant]
     Dosage: UNK
  4. FERROMIA [Concomitant]
     Dosage: UNK
  5. MUCOSTA [Concomitant]
     Dosage: UNK
  6. TAKEPRON OD [Concomitant]
     Dosage: UNK
     Dates: start: 20130905
  7. SAWACILLIN [Concomitant]
     Dosage: UNK
     Dates: start: 20130905
  8. MUCODYNE [Concomitant]
     Dosage: UNK
     Dates: start: 20130905

REACTIONS (4)
  - Fracture [Recovered/Resolved]
  - Hallucination [Recovered/Resolved]
  - Decreased appetite [Recovered/Resolved]
  - Productive cough [Recovered/Resolved]
